FAERS Safety Report 7176946-0 (Version None)
Quarter: 2010Q4

REPORT INFORMATION
  Report Type: 
  Country: None (occurrence: None)
  Receive Date: 20101220
  Receipt Date: 20101213
  Transmission Date: 20110411
  Serious: Yes (Other)
  Sender: FDA-Public Use
  Company Number: JP-PFIZER INC-2010094920

PATIENT
  Age: 84 Year
  Sex: Female
  Weight: 45 kg

DRUGS (18)
  1. LYRICA [Suspect]
     Indication: POST HERPETIC NEURALGIA
     Dosage: 75 MG, 2X/DAY
     Route: 048
     Dates: start: 20100714, end: 20100728
  2. ASPIRIN [Concomitant]
     Dosage: UNK
     Route: 048
  3. LIPITOR [Concomitant]
     Dosage: UNK
     Route: 048
  4. OMEPRAL [Concomitant]
     Dosage: UNK
     Route: 048
  5. NU LOTAN [Concomitant]
     Dosage: UNK
     Route: 048
  6. AMARYL [Concomitant]
     Dosage: UNK
     Route: 048
  7. GANATON [Concomitant]
     Dosage: UNK
     Route: 048
  8. MUCOSOLVAN [Concomitant]
     Dosage: UNK
     Route: 048
  9. GASTROM [Concomitant]
     Dosage: UNK
     Route: 048
  10. MYSLEE [Concomitant]
     Dosage: UNK
     Route: 048
  11. LANIRAPID [Concomitant]
     Dosage: UNK
     Route: 048
  12. GABAPENTIN [Concomitant]
     Indication: POST HERPETIC NEURALGIA
     Dosage: 200 MG, 2X/DAY
     Route: 048
     Dates: start: 20070829, end: 20071129
  13. GABAPENTIN [Concomitant]
     Dosage: 200 MG, 1X/DAY
     Route: 048
     Dates: start: 20071130, end: 20100713
  14. GABAPENTIN [Concomitant]
     Dosage: 200 MG, 1X/DAY
     Route: 048
     Dates: start: 20100728
  15. LUVOX [Concomitant]
     Indication: POST HERPETIC NEURALGIA
     Dosage: 25 MG, 1X/DAY
     Route: 048
     Dates: start: 20090909, end: 20091008
  16. LUVOX [Concomitant]
     Dosage: 25 MG, 2X/DAY
     Route: 048
     Dates: start: 20091009
  17. ZYRTEC [Concomitant]
     Dosage: UNK
     Route: 048
  18. GRAMALIL [Concomitant]
     Dosage: UNK
     Route: 048

REACTIONS (1)
  - MYOCLONUS [None]
